FAERS Safety Report 7158964-1 (Version None)
Quarter: 2010Q4

REPORT INFORMATION
  Report Type: 
  Country: None (occurrence: None)
  Receive Date: 20101126
  Receipt Date: 20101111
  Transmission Date: 20110411
  Serious: Yes (Death, Hospitalization, Other)
  Sender: FDA-Public Use
  Company Number: 2010PROUSA00116

PATIENT
  Age: 80 Year
  Sex: Male
  Weight: 74.8 kg

DRUGS (9)
  1. PROVENGE [Suspect]
     Indication: PROSTATE CANCER METASTATIC
     Dosage: 250 ML, SINGLE, INTRAVENOUS, 250 ML, SINGLE, INTRAVENOUS, 250 ML, SINGLE, INTRAVENOUS
     Route: 042
     Dates: start: 20100702, end: 20100702
  2. PROVENGE [Suspect]
     Indication: PROSTATE CANCER METASTATIC
     Dosage: 250 ML, SINGLE, INTRAVENOUS, 250 ML, SINGLE, INTRAVENOUS, 250 ML, SINGLE, INTRAVENOUS
     Route: 042
     Dates: start: 20100805, end: 20100805
  3. PROVENGE [Suspect]
     Indication: PROSTATE CANCER METASTATIC
     Dosage: 250 ML, SINGLE, INTRAVENOUS, 250 ML, SINGLE, INTRAVENOUS, 250 ML, SINGLE, INTRAVENOUS
     Route: 042
     Dates: start: 20100819, end: 20100819
  4. PROVENGE [Suspect]
  5. PROVENGE [Suspect]
  6. OMEPRAZOLE [Concomitant]
  7. PREDNISONE [Concomitant]
  8. TRAZODONE (TRAZODONE) [Concomitant]
  9. ERGOCALCIFEROL [Concomitant]

REACTIONS (2)
  - CEREBRAL HAEMORRHAGE [None]
  - THROMBOCYTOPENIA [None]
